FAERS Safety Report 14896672 (Version 3)
Quarter: 2018Q4

REPORT INFORMATION
  Report Type: Spontaneous
  Country: JP (occurrence: JP)
  Receive Date: 20180515
  Receipt Date: 20181006
  Transmission Date: 20190204
  Serious: Yes (Death, Other)
  Sender: FDA-Public Use
  Company Number: JP-AMGEN-JPNSP2018065532

PATIENT
  Age: 43 Year
  Sex: Male

DRUGS (17)
  1. MIRCERA [Concomitant]
     Active Substance: METHOXY POLYETHYLENE GLYCOL-EPOETIN BETA
     Dosage: UNK
     Dates: end: 20180307
  2. PARSABIV [Suspect]
     Active Substance: ETELCALCETIDE HYDROCHLORIDE
     Dosage: 2.5 MG, 2 TIMES/WK
     Route: 042
     Dates: start: 20170628
  3. GASTER [Concomitant]
     Active Substance: FAMOTIDINE
     Dosage: UNK
  4. PARSABIV [Suspect]
     Active Substance: ETELCALCETIDE HYDROCHLORIDE
     Indication: HYPERPARATHYROIDISM SECONDARY
     Dosage: 5 MG, 3 TIMES/WK
     Route: 042
     Dates: start: 20170313, end: 20170320
  5. REGPARA [Suspect]
     Active Substance: CINACALCET HYDROCHLORIDE
     Indication: PRODUCT USED FOR UNKNOWN INDICATION
     Dosage: UNK
     Route: 065
     Dates: start: 201702
  6. PHOSBLOCK [Concomitant]
     Active Substance: FERRIC HYDROXIDE
     Dosage: UNK
  7. VANARL E [Concomitant]
     Dosage: UNK
  8. PARSABIV [Suspect]
     Active Substance: ETELCALCETIDE HYDROCHLORIDE
     Dosage: 5 MG, 2 TIMES/WK
     Route: 042
     Dates: start: 20170327, end: 20170407
  9. ALDOMET [Concomitant]
     Active Substance: METHYLDOPA
     Dosage: UNK
  10. ARTIST [Concomitant]
     Active Substance: CARVEDILOL
     Dosage: UNK
  11. SELOKEN [Concomitant]
     Active Substance: METOPROLOL
     Dosage: UNK
     Dates: start: 20140426
  12. RIONA [Concomitant]
     Active Substance: FERRIC CITRATE ANHYDROUS
     Dosage: UNK
     Dates: start: 20150807
  13. ALINAMIN F [Concomitant]
     Active Substance: FURSULTIAMINE HYDROCHLORIDE
     Dosage: UNK
     Dates: start: 20141027
  14. PARSABIV [Suspect]
     Active Substance: ETELCALCETIDE HYDROCHLORIDE
     Dosage: 2.5 MG, 3 TIMES/WK
     Route: 042
     Dates: start: 20170410, end: 20170623
  15. AZILVA [Concomitant]
     Active Substance: AZILSARTAN KAMEDOXOMIL
     Dosage: UNK
  16. NORVASC [Concomitant]
     Active Substance: AMLODIPINE BESYLATE
     Dosage: UNK
  17. CARDENALIN [Concomitant]
     Active Substance: DOXAZOSIN MESYLATE
     Dosage: UNK

REACTIONS (3)
  - Haemorrhage intracranial [Fatal]
  - Blood calcium decreased [Unknown]
  - Blood parathyroid hormone decreased [Unknown]

NARRATIVE: CASE EVENT DATE: 2017
